FAERS Safety Report 10992465 (Version 1)
Quarter: 2015Q2

REPORT INFORMATION
  Report Type: Spontaneous
  Country: JP (occurrence: JP)
  Receive Date: 20150406
  Receipt Date: 20150406
  Transmission Date: 20150821
  Serious: Yes (Death, Other)
  Sender: FDA-Public Use
  Company Number: PHJP2015JP002926

PATIENT
  Age: 85 Year
  Sex: Male

DRUGS (1)
  1. NEORAL [Suspect]
     Active Substance: CYCLOSPORINE
     Indication: NEPHROTIC SYNDROME
     Dosage: 50 MG, QD
     Route: 048

REACTIONS (3)
  - Gastrointestinal anastomotic leak [Unknown]
  - Gastric cancer [Fatal]
  - Impaired healing [Fatal]
